FAERS Safety Report 23406336 (Version 2)
Quarter: 2024Q1

REPORT INFORMATION
  Report Type: Spontaneous
  Country: US (occurrence: US)
  Receive Date: 20240116
  Receipt Date: 20240327
  Transmission Date: 20240410
  Serious: No
  Sender: FDA-Public Use
  Company Number: US-PFIZER INC-PV202400001882

PATIENT
  Age: 70 Year
  Sex: Female

DRUGS (2)
  1. EUCRISA [Suspect]
     Active Substance: CRISABOROLE
     Indication: Eczema infantile
     Dosage: UNK, 4X/DAY
  2. EUCRISA [Suspect]
     Active Substance: CRISABOROLE
     Dosage: APPLY ONCE PRN (AS NEEDED) 60 GRAMS
     Route: 061

REACTIONS (3)
  - Pruritus [Unknown]
  - Pain [Unknown]
  - Off label use [Unknown]
